FAERS Safety Report 9633378 (Version 1)
Quarter: 2013Q4

REPORT INFORMATION
  Report Type: Spontaneous
  Country: US (occurrence: US)
  Receive Date: 20131021
  Receipt Date: 20131021
  Transmission Date: 20140711
  Serious: Yes (Other)
  Sender: FDA-Public Use
  Company Number: US-BRISTOL-MYERS SQUIBB COMPANY-19083583

PATIENT
  Age: 3 Decade
  Sex: Female

DRUGS (1)
  1. YERVOY [Suspect]

REACTIONS (2)
  - Enterocolitis haemorrhagic [Unknown]
  - Fatigue [Unknown]
